FAERS Safety Report 18822216 (Version 2)
Quarter: 2021Q1

REPORT INFORMATION
  Report Type: Report from Study
  Country: AU (occurrence: AU)
  Receive Date: 20210202
  Receipt Date: 20210205
  Transmission Date: 20210419
  Serious: Yes (Hospitalization, Other)
  Sender: FDA-Public Use
  Company Number: AU-EXELIXIS-XL18421037052

PATIENT

DRUGS (14)
  1. PANADEINE FORTE [Concomitant]
     Active Substance: ACETAMINOPHEN\CODEINE PHOSPHATE
     Indication: ARTHRITIS
  2. CARTIA [Concomitant]
     Indication: PROPHYLAXIS
  3. PHENERGAN [Concomitant]
     Active Substance: PROMETHAZINE HYDROCHLORIDE
     Indication: RASH
  4. PHENERGAN [Concomitant]
     Active Substance: PROMETHAZINE HYDROCHLORIDE
     Indication: PRURITUS
  5. EUTROXSIG [Concomitant]
     Active Substance: LEVOTHYROXINE SODIUM
     Indication: THYROID HORMONE REPLACEMENT THERAPY
  6. VALIUM [Concomitant]
     Active Substance: DIAZEPAM
     Indication: ANXIETY
  7. RESTAVIT [Concomitant]
     Active Substance: DOXYLAMINE SUCCINATE
     Indication: INSOMNIA
  8. ATEZOLIZUMAB. [Suspect]
     Active Substance: ATEZOLIZUMAB
     Indication: RENAL CELL CARCINOMA
     Dosage: 1200 MG, Q3WEEKS
     Route: 042
     Dates: start: 20210113
  9. CELEBREX [Concomitant]
     Active Substance: CELECOXIB
     Indication: ARTHRITIS
  10. COVERSYL [Concomitant]
     Active Substance: PERINDOPRIL
     Indication: HYPERTENSION
  11. STILNOX [Concomitant]
     Active Substance: ZOLPIDEM TARTRATE
     Indication: INSOMNIA
  12. PARACETAMOL [Concomitant]
     Active Substance: ACETAMINOPHEN
     Indication: ARTHRALGIA
  13. CABOZANTINIB [Suspect]
     Active Substance: CABOZANTINIB
     Indication: RENAL CELL CARCINOMA
     Dosage: 60 MG, QD (3 TABLET OF 20 MG)
     Route: 048
     Dates: start: 20210113
  14. CADUET [Concomitant]
     Active Substance: AMLODIPINE BESYLATE\ATORVASTATIN CALCIUM
     Indication: HYPERTENSION

REACTIONS (1)
  - Myositis [Recovering/Resolving]

NARRATIVE: CASE EVENT DATE: 20210125
